FAERS Safety Report 8605270-1 (Version None)
Quarter: 2012Q3

REPORT INFORMATION
  Report Type: 
  Country: None (occurrence: None)
  Receive Date: 20120807
  Receipt Date: 20120724
  Transmission Date: 20120928
  Serious: Yes (Death)
  Sender: FDA-Public Use
  Company Number: UTC-020781

PATIENT
  Age: 77 Year
  Sex: Female
  Weight: 55.91 kg

DRUGS (5)
  1. TYVASO [Suspect]
     Indication: PULMONARY ARTERIAL HYPERTENSION
     Dosage: 216 MCG (54 MCG,4 IN 1 D),INHALATION
     Route: 055
     Dates: start: 20120405
  2. TYVASO [Suspect]
     Indication: COR PULMONALE CHRONIC
     Dosage: 216 MCG (54 MCG,4 IN 1 D),INHALATION
     Route: 055
     Dates: start: 20120405
  3. ADCIRCA [Concomitant]
  4. TRACLEER [Concomitant]
  5. NIFEDIPINE [Concomitant]

REACTIONS (1)
  - SUDDEN DEATH [None]
